FAERS Safety Report 5993362-5 (Version None)
Quarter: 2008Q4

REPORT INFORMATION
  Report Type: 
  Country: None (occurrence: None)
  Receive Date: 20081209
  Receipt Date: 20080909
  Transmission Date: 20090506
  Serious: No
  Sender: FDA-Public Use
  Company Number: 08H-163-0314872-00

PATIENT
  Age: 25 Year
  Sex: Female
  Weight: 73.4827 kg

DRUGS (5)
  1. DEMEROL [Suspect]
     Dosage: 50 MG, ONCE, INTRAVENOUS ; 25 MG, ONCE, INTRAVENOUS
     Route: 042
     Dates: start: 20080903, end: 20080903
  2. DEMEROL [Suspect]
     Dosage: 50 MG, ONCE, INTRAVENOUS ; 25 MG, ONCE, INTRAVENOUS
     Route: 042
     Dates: start: 20080903, end: 20080903
  3. VERSED [Concomitant]
  4. BIRTH CONTROL PILLS(ORAL CONTRACEPTIVE NOS) [Concomitant]
  5. CYMBALTA [Concomitant]

REACTIONS (2)
  - INFUSION SITE ERYTHEMA [None]
  - URTICARIA [None]
